FAERS Safety Report 22130583 (Version 1)
Quarter: 2023Q1

REPORT INFORMATION
  Report Type: Report from Study
  Country: BR (occurrence: BR)
  Receive Date: 20230323
  Receipt Date: 20230323
  Transmission Date: 20230418
  Serious: Yes (Hospitalization)
  Sender: FDA-Public Use
  Company Number: BR-002147023-NVSC2023BR025021

PATIENT
  Sex: Female

DRUGS (1)
  1. KISQALI [Suspect]
     Active Substance: RIBOCICLIB
     Indication: Product used for unknown indication
     Dosage: 3 DOSAGE FORM, QD
     Route: 065
     Dates: start: 20230126

REACTIONS (7)
  - Total lung capacity decreased [Unknown]
  - Pleural effusion [Unknown]
  - Anaemia [Not Recovered/Not Resolved]
  - Haemoptysis [Recovering/Resolving]
  - Somnolence [Unknown]
  - Incorrect dose administered [Unknown]
  - Fatigue [Unknown]
